FAERS Safety Report 8501450-4 (Version None)
Quarter: 2012Q3

REPORT INFORMATION
  Report Type: 
  Country: None (occurrence: None)
  Receive Date: 20120710
  Receipt Date: 20120626
  Transmission Date: 20120928
  Serious: Yes (Hospitalization)
  Sender: FDA-Public Use
  Company Number: AU-ABBOTT-12P-008-0908835-00

PATIENT
  Sex: Female

DRUGS (6)
  1. CILAZAPRIL [Concomitant]
     Indication: HYPERTENSION
     Dosage: 2.5MG DAILY
     Route: 048
  2. AMILORIDE HYDROCHLORIDE [Concomitant]
     Indication: HYPERTENSION
     Dosage: 5 MG DAILY
     Route: 048
  3. ETANERCEPT [Suspect]
     Indication: PSORIASIS
     Dates: start: 20111011, end: 20111102
  4. NAPROXEN [Concomitant]
     Indication: ARTHRITIS
     Route: 048
  5. HUMIRA [Suspect]
     Indication: PRODUCT USED FOR UNKNOWN INDICATION
  6. PAROXETINE [Concomitant]
     Indication: DEPRESSION
     Dosage: 20 MG DAILY
     Route: 048

REACTIONS (7)
  - HYPOKALAEMIA [None]
  - MALAISE [None]
  - CHILLS [None]
  - FLUSHING [None]
  - DIARRHOEA [None]
  - VOMITING [None]
  - GASTROENTERITIS [None]
